FAERS Safety Report 18549334 (Version 1)
Quarter: 2020Q4

REPORT INFORMATION
  Report Type: Spontaneous
  Country: GB (occurrence: GB)
  Receive Date: 20201126
  Receipt Date: 20201126
  Transmission Date: 20210114
  Serious: Yes (Hospitalization)
  Sender: FDA-Public Use
  Company Number: GB-009507513-2011GBR010548

PATIENT
  Age: 68 Year
  Sex: Male

DRUGS (14)
  1. LISINOPRIL. [Suspect]
     Active Substance: LISINOPRIL
     Dosage: 10 MILLIGRAM, QD
     Route: 048
     Dates: end: 20201013
  2. SPIRONOLACTONE. [Suspect]
     Active Substance: SPIRONOLACTONE
     Dosage: 12.5 MILLIGRAM, QD
     Route: 048
     Dates: end: 20201013
  3. ALBUTEROL. [Concomitant]
     Active Substance: ALBUTEROL
     Dosage: 1-2 PUFFS PRN (AS NECESSARY)
     Route: 055
  4. ATORVASTATIN [Concomitant]
     Active Substance: ATORVASTATIN
     Dosage: 80 MILLIGRAM, QD, AT NIGHT
     Route: 045
  5. FUROSEMIDE. [Suspect]
     Active Substance: FUROSEMIDE
     Dosage: 40 MILLIGRAM, QD, IN THE MORNING
     Route: 048
     Dates: end: 20201013
  6. CARBOCYSTEINE [Concomitant]
     Active Substance: CARBOCYSTEINE
     Dosage: 1125 MILLIGRAM, QD
     Route: 048
  7. BISOPROLOL [Suspect]
     Active Substance: BISOPROLOL
     Dosage: 2.5 MILLIGRAM, QD
     Route: 048
     Dates: end: 20201013
  8. FLUOXETINE [Suspect]
     Active Substance: FLUOXETINE HYDROCHLORIDE
     Dosage: 20 MILLIGRAM, QD
     Route: 048
     Dates: end: 20201013
  9. ACETAMINOPHEN AND CODEINE [Concomitant]
     Active Substance: ACETAMINOPHEN\CODEINE PHOSPHATE
     Dosage: DOSE: 4 (UNITS NOT REPORTED); 15/500MG 1-2 FOUR TIMES DAILY AS REQUIRED.
     Route: 048
  10. TRELEGY ELLIPTA [Concomitant]
     Active Substance: FLUTICASONE FUROATE\UMECLIDINIUM BROMIDE\VILANTEROL TRIFENATATE
     Dosage: TRELEGY ELLIPTA 92MICROGRAMS/DOSE / 55MICROGRAMS/DOSE / 22MICROGRAMS/D; INHALED
     Route: 050
  11. GABAPENTIN. [Concomitant]
     Active Substance: GABAPENTIN
     Dosage: 300 MILLIGRAM, QD
     Route: 048
  12. OMEPRAZOLE. [Concomitant]
     Active Substance: OMEPRAZOLE
     Dosage: 20 MILLIGRAM, QD; DOSAGE FORM: GASTRO-RESISTANT CAPSULE
     Route: 048
  13. DIGOXIN. [Concomitant]
     Active Substance: DIGOXIN
     Dosage: 187.5 MICROGRAM, QD
     Route: 048
  14. APIXABAN [Concomitant]
     Active Substance: APIXABAN
     Dosage: 10 MILLIGRAM, QD
     Route: 048

REACTIONS (5)
  - Hypophagia [Unknown]
  - Orthostatic hypotension [Recovered/Resolved]
  - Dehydration [Unknown]
  - Condition aggravated [Unknown]
  - Acute kidney injury [Recovered/Resolved]

NARRATIVE: CASE EVENT DATE: 202010
